FAERS Safety Report 7213112-4 (Version None)
Quarter: 2010Q4

REPORT INFORMATION
  Report Type: 
  Country: None (occurrence: None)
  Receive Date: 20101229
  Receipt Date: 20101217
  Transmission Date: 20110411
  Serious: Yes (Other)
  Sender: FDA-Public Use
  Company Number: 2010CP000331

PATIENT
  Age: 9 Year
  Sex: Male

DRUGS (1)
  1. PERFALGAN (PARACETAMOL) [Suspect]
     Dosage: IV
     Route: 042
     Dates: start: 20101106, end: 20101106

REACTIONS (2)
  - CHILLS [None]
  - TONIC CONVULSION [None]
